FAERS Safety Report 14511892 (Version 1)
Quarter: 2018Q1

REPORT INFORMATION
  Report Type: Report from Study
  Country: US (occurrence: US)
  Receive Date: 20180209
  Receipt Date: 20180209
  Transmission Date: 20180509
  Serious: Yes (Hospitalization)
  Sender: FDA-Public Use
  Company Number: US-JNJFOC-20171231196

PATIENT
  Age: 52 Year
  Sex: Female

DRUGS (10)
  1. ALOGLIPTIN. [Concomitant]
     Active Substance: ALOGLIPTIN
  2. TOBREX [Concomitant]
     Active Substance: TOBRAMYCIN
  3. VIBRAMYCINE [Concomitant]
  4. IMBRUVICA [Suspect]
     Active Substance: IBRUTINIB
     Indication: NON-HODGKIN^S LYMPHOMA
     Route: 048
     Dates: start: 20171027
  5. BACITRACIN ZINC. [Concomitant]
     Active Substance: BACITRACIN ZINC
  6. IBUPROFEN. [Concomitant]
     Active Substance: IBUPROFEN
  7. GLIPIZIDE. [Concomitant]
     Active Substance: GLIPIZIDE
  8. CENTRUM [Concomitant]
     Active Substance: VITAMINS
  9. METFORMIN [Concomitant]
     Active Substance: METFORMIN HYDROCHLORIDE
  10. PROAIR HFA [Concomitant]
     Active Substance: ALBUTEROL SULFATE

REACTIONS (1)
  - Hospitalisation [Recovered/Resolved]

NARRATIVE: CASE EVENT DATE: 201712
